FAERS Safety Report 12068213 (Version 1)
Quarter: 2016Q1

REPORT INFORMATION
  Report Type: Spontaneous
  Country: US (occurrence: US)
  Receive Date: 20160211
  Receipt Date: 20160211
  Transmission Date: 20160526
  Serious: No
  Sender: FDA-Public Use
  Company Number: US-SMITH AND NEPHEW, INC-2015SMT00439

PATIENT
  Sex: Female
  Weight: 111.11 kg

DRUGS (5)
  1. LISINOPRIL. [Concomitant]
     Active Substance: LISINOPRIL
  2. REGRANEX [Suspect]
     Active Substance: BECAPLERMIN
     Indication: SKIN ULCER
     Dosage: UNK UNK, 2X/DAY
     Route: 061
     Dates: start: 201509
  3. HUMULIN N [Concomitant]
     Active Substance: INSULIN HUMAN
     Dosage: 30 IU, 1X/DAY
  4. HUMULIN N [Concomitant]
     Active Substance: INSULIN HUMAN
     Dosage: 15 IU, UNK
  5. HUMULIN R [Concomitant]
     Active Substance: INSULIN HUMAN
     Dosage: 15 IU, 3X/DAY

REACTIONS (4)
  - Application site haemorrhage [Unknown]
  - Application site pain [Recovered/Resolved]
  - Application site discolouration [Unknown]
  - Inappropriate schedule of drug administration [Not Recovered/Not Resolved]

NARRATIVE: CASE EVENT DATE: 2015
